FAERS Safety Report 7709363-2 (Version None)
Quarter: 2011Q3

REPORT INFORMATION
  Report Type: 
  Country: None (occurrence: None)
  Receive Date: 20110819
  Receipt Date: 20110811
  Transmission Date: 20111222
  Serious: Yes (Hospitalization)
  Sender: FDA-Public Use
  Company Number: B0520339A

PATIENT
  Sex: Female
  Weight: 110.4 kg

DRUGS (5)
  1. DEXAMETHASONE ACETATE [Suspect]
     Indication: MULTIPLE MYELOMA
  2. DOXORUBICIN HCL [Suspect]
     Indication: MULTIPLE MYELOMA
     Dosage: INTRAVENOUS
     Route: 042
  3. MELPHALAN HYDROCHLORIDE [Suspect]
     Indication: MULTIPLE MYELOMA
     Dosage: ORAL
     Route: 048
  4. PREDNISOLONE [Suspect]
     Indication: MULTIPLE MYELOMA
     Dosage: ORAL
     Route: 048
  5. VINCRISTINE SULFATE [Suspect]
     Indication: MULTIPLE MYELOMA
     Dosage: INTRAVENOUS
     Route: 042

REACTIONS (24)
  - BLOOD AMYLASE INCREASED [None]
  - INFECTION IN AN IMMUNOCOMPROMISED HOST [None]
  - TOXIC SKIN ERUPTION [None]
  - EPSTEIN-BARR VIRUS INFECTION [None]
  - TYPE 1 DIABETES MELLITUS [None]
  - GALLBLADDER DISORDER [None]
  - LIVER DISORDER [None]
  - LIVEDO RETICULARIS [None]
  - METABOLIC ACIDOSIS [None]
  - VIRAL SKIN INFECTION [None]
  - PYREXIA [None]
  - CYANOSIS [None]
  - WHITE BLOOD CELL COUNT INCREASED [None]
  - PHARYNGEAL ERYTHEMA [None]
  - CYTOMEGALOVIRUS TEST POSITIVE [None]
  - ERYTHEMA MULTIFORME [None]
  - PROTEIN TOTAL DECREASED [None]
  - HEPATIC ENZYME INCREASED [None]
  - HEPATOMEGALY [None]
  - BLOOD URINE PRESENT [None]
  - C-REACTIVE PROTEIN INCREASED [None]
  - ATROPHY [None]
  - EOSINOPHILIA [None]
  - DIABETIC KETOACIDOSIS [None]
